FAERS Safety Report 24693718 (Version 1)
Quarter: 2024Q4

REPORT INFORMATION
  Report Type: Spontaneous
  Country: HR (occurrence: HR)
  Receive Date: 20241204
  Receipt Date: 20241204
  Transmission Date: 20250115
  Serious: Yes (Other)
  Sender: NOVARTIS
  Company Number: None

PATIENT
  Sex: Female

DRUGS (5)
  1. TRILEPTAL [Suspect]
     Active Substance: OXCARBAZEPINE
     Indication: Product used for unknown indication
     Dosage: UNK (?ENA MO?DA POPILA NEPOZNATU KOLI?INU LIJEKOVA KOJI SU BILI U BO?ICAMA)
     Route: 048
     Dates: start: 202410, end: 202410
  2. DIAZEPAM [Suspect]
     Active Substance: DIAZEPAM
     Indication: Product used for unknown indication
     Dosage: UNK (?ENA MO?DA POPILA NEPOZNATU KOLI?INU LIJEKOVA KOJI SU BILI U BO?ICAMA)
     Route: 048
     Dates: start: 202410, end: 202410
  3. MIRTAZAPINE [Suspect]
     Active Substance: MIRTAZAPINE
     Indication: Product used for unknown indication
     Dosage: UNK (?ENA MO?DA POPILA NEPOZNATU KOLI?INU LIJEKOVA KOJI SU BILI U BO?ICAMA)
     Route: 048
     Dates: start: 202410, end: 202410
  4. ESCITALOPRAM OXALATE [Suspect]
     Active Substance: ESCITALOPRAM OXALATE
     Indication: Product used for unknown indication
     Dosage: UNK (?ENA MO?DA POPILA NEPOZNATU KOLI?INU LIJEKOVA KOJI SU BILI U BO?ICAMA)
     Route: 048
     Dates: start: 202410, end: 202410
  5. FOLIC ACID [Suspect]
     Active Substance: FOLIC ACID
     Indication: Product used for unknown indication
     Dosage: UNK (?ENA MO?DA POPILA NEPOZNATU KOLI?INU LIJEKOVA KOJI SU BILI U BO?ICAMA)
     Route: 048
     Dates: start: 202410, end: 202410

REACTIONS (1)
  - Suicide attempt [Unknown]

NARRATIVE: CASE EVENT DATE: 20241001
